FAERS Safety Report 6492679-8 (Version None)
Quarter: 2009Q4

REPORT INFORMATION
  Report Type: 
  Country: None (occurrence: None)
  Receive Date: 20091214
  Receipt Date: 20091130
  Transmission Date: 20100525
  Serious: Yes (Death)
  Sender: FDA-Public Use
  Company Number: CO-PFIZER INC-2009305190

PATIENT
  Sex: Male

DRUGS (1)
  1. ZOLOFT [Suspect]

REACTIONS (2)
  - DEATH [None]
  - DIAPHRAGMATIC HERNIA [None]
